FAERS Safety Report 16269126 (Version 1)
Quarter: 2019Q2

REPORT INFORMATION
  Report Type: Spontaneous
  Country: US (occurrence: US)
  Receive Date: 20190502
  Receipt Date: 20190502
  Transmission Date: 20190711
  Serious: Yes (Disabling)
  Sender: FDA-Public Use
  Company Number: None

PATIENT
  Age: 70 Year
  Sex: Female
  Weight: 53.1 kg

DRUGS (14)
  1. GABAPENTIN. [Concomitant]
     Active Substance: GABAPENTIN
  2. LAXATIVE [Concomitant]
     Active Substance: UNSPECIFIED INGREDIENT
  3. EFFEXOR [Concomitant]
     Active Substance: VENLAFAXINE HYDROCHLORIDE
  4. OMEPRAZOLE. [Concomitant]
     Active Substance: OMEPRAZOLE
  5. SINGULAIR [Concomitant]
     Active Substance: MONTELUKAST SODIUM
  6. SENIOR VITAMIN [Concomitant]
  7. EMBEDA [Suspect]
     Active Substance: MORPHINE SULFATE\NALTREXONE HYDROCHLORIDE
     Indication: ARTHRALGIA
     Dosage: ?          QUANTITY:60 CAPSULE(S);?
     Route: 048
     Dates: start: 20190421, end: 20190501
  8. MS CONTIN [Concomitant]
     Active Substance: MORPHINE SULFATE
  9. IBUPROFEN. [Concomitant]
     Active Substance: IBUPROFEN
  10. HEMP OIL EXTRACT [Concomitant]
     Active Substance: CANNABIS SATIVA SEED OIL
  11. STOOL SOFTENER (DOCUSATE) [Concomitant]
     Active Substance: DOCUSATE
  12. DIAZEPAM. [Concomitant]
     Active Substance: DIAZEPAM
  13. TRAZODONE [Concomitant]
     Active Substance: TRAZODONE HYDROCHLORIDE
  14. HEMP 50MG CREME [Concomitant]

REACTIONS (4)
  - Drug intolerance [None]
  - Product substitution issue [None]
  - Insurance issue [None]
  - Drug withdrawal syndrome [None]

NARRATIVE: CASE EVENT DATE: 20190421
